FAERS Safety Report 25009086 (Version 1)
Quarter: 2025Q1

REPORT INFORMATION
  Report Type: Report from Study
  Country: US (occurrence: US)
  Receive Date: 20250225
  Receipt Date: 20250225
  Transmission Date: 20250408
  Serious: Yes (Other)
  Sender: NOVARTIS
  Company Number: US-002147023-NVSC2024US192119

PATIENT
  Age: 27 Year
  Sex: Female

DRUGS (2)
  1. KESIMPTA [Suspect]
     Active Substance: OFATUMUMAB
     Indication: Multiple sclerosis
     Route: 058
     Dates: start: 20240920
  2. KESIMPTA [Suspect]
     Active Substance: OFATUMUMAB
     Route: 058
     Dates: start: 20241118

REACTIONS (9)
  - Multiple sclerosis [Unknown]
  - Neurogenic bowel [Unknown]
  - Pain [Unknown]
  - Insomnia [Unknown]
  - Back pain [Unknown]
  - Arthralgia [Unknown]
  - Therapeutic response shortened [Unknown]
  - Brain fog [Unknown]
  - Somnolence [Unknown]
